FAERS Safety Report 22653415 (Version 1)
Quarter: 2023Q2

REPORT INFORMATION
  Report Type: Report from Study
  Country: US (occurrence: None)
  Receive Date: 20230629
  Receipt Date: 20230629
  Transmission Date: 20230722
  Serious: Yes (Other)
  Sender: FDA-Public Use
  Company Number: US-ROCHE-3376811

PATIENT

DRUGS (2)
  1. TRASTUZUMAB [Suspect]
     Active Substance: TRASTUZUMAB
     Indication: Neoplasm
     Dosage: ON 13/JUN/2023, MOST RECENT DOSE OF TRASTUZUMAB WAS ADMINISTERED
     Route: 058
     Dates: start: 20230504
  2. TUCATINIB [Suspect]
     Active Substance: TUCATINIB
     Indication: Neoplasm
     Dosage: ON 13/JUN/2023, MOST RECENT DOSE OF TUCATINIB WAS ADMINISTERED
     Route: 048
     Dates: start: 20230504

REACTIONS (1)
  - Hypomagnesaemia [Not Recovered/Not Resolved]

NARRATIVE: CASE EVENT DATE: 20230612
